FAERS Safety Report 4484572-7 (Version None)
Quarter: 2004Q3

REPORT INFORMATION
  Report Type: 
  Country: None (occurrence: None)
  Receive Date: 20040921
  Receipt Date: 20031216
  Transmission Date: 20050211
  Serious: Yes (Hospitalization)
  Sender: FDA-Public Use
  Company Number: 163-20785-03120453

PATIENT
  Age: 66 Year
  Sex: Female
  Weight: 62.1428 kg

DRUGS (10)
  1. THALOMID [Suspect]
     Indication: SMALL CELL LUNG CANCER STAGE UNSPECIFIED
     Dosage: 200 MG, AT BEDTIME, ORAL
     Route: 048
     Dates: start: 20031208
  2. CLONIDINE [Concomitant]
  3. DIGOXIN [Concomitant]
  4. GLIPIZIDE [Concomitant]
  5. LASIX [Concomitant]
  6. TOPROL-XL [Concomitant]
  7. SIMVASTATIN [Concomitant]
  8. LODOPIN (ZOTEPINE) [Concomitant]
  9. PIOGLITAZONE HCL [Concomitant]
  10. ZANTAC [Concomitant]

REACTIONS (2)
  - CARDIAC FAILURE CONGESTIVE [None]
  - DYSPNOEA [None]
